FAERS Safety Report 15234452 (Version 1)
Quarter: 2018Q3

REPORT INFORMATION
  Report Type: Spontaneous
  Country: US (occurrence: US)
  Receive Date: 20180803
  Receipt Date: 20180803
  Transmission Date: 20181010
  Serious: No
  Sender: FDA-Public Use
  Company Number: US-ALKEM LABORATORIES LIMITED-US-ALKEM-2018-05282

PATIENT
  Sex: Male

DRUGS (1)
  1. FINASTERIDE. [Suspect]
     Active Substance: FINASTERIDE
     Indication: PRODUCT USED FOR UNKNOWN INDICATION
     Dosage: UNK
     Route: 065

REACTIONS (7)
  - Nasal congestion [Unknown]
  - Erectile dysfunction [Unknown]
  - Ejaculation disorder [Unknown]
  - Libido decreased [Unknown]
  - Skin irritation [Unknown]
  - Breast tenderness [Unknown]
  - Nausea [Unknown]
